FAERS Safety Report 10495172 (Version 1)
Quarter: 2014Q3

REPORT INFORMATION
  Report Type: Spontaneous
  Country: US (occurrence: None)
  Receive Date: 20140815
  Receipt Date: 20140815
  Transmission Date: 20150326
  Serious: Yes (Hospitalization, Other)
  Sender: FDA-Public Use
  Company Number: ADR-2005-2193

PATIENT
  Age: 35 Year
  Sex: Male

DRUGS (5)
  1. HYDROMORPHONE INTRATHECAL [Suspect]
     Active Substance: HYDROMORPHONE
     Indication: PAIN
  2. FENTANYL. [Suspect]
     Active Substance: FENTANYL
  3. BUPIVACAINE [Suspect]
     Active Substance: BUPIVACAINE
  4. CLONIDINE. [Suspect]
     Active Substance: CLONIDINE
  5. LIORESAL [Suspect]
     Active Substance: BACLOFEN
     Indication: PAIN

REACTIONS (2)
  - Pain [None]
  - Drug withdrawal syndrome [None]
